FAERS Safety Report 10538184 (Version 1)
Quarter: 2014Q4

REPORT INFORMATION
  Report Type: Other
  Country: GB (occurrence: GB)
  Receive Date: 20141023
  Receipt Date: 20141023
  Transmission Date: 20150529
  Serious: Yes (Other)
  Sender: FDA-Public Use
  Company Number: GB-MYLANLABS-2014M1007191

PATIENT

DRUGS (2)
  1. CAPECITABINE. [Suspect]
     Active Substance: CAPECITABINE
     Indication: CHEMOTHERAPY
     Dosage: 2000 MG, BID
     Route: 048
     Dates: start: 20140602, end: 20140922
  2. PYRIDOXINE [Concomitant]
     Active Substance: PYRIDOXINE

REACTIONS (6)
  - Penile blister [Recovering/Resolving]
  - Penile haemorrhage [Recovering/Resolving]
  - Penile pain [Recovering/Resolving]
  - Blister infected [Recovering/Resolving]
  - Penile ulceration [Recovering/Resolving]
  - Palmar-plantar erythrodysaesthesia syndrome [Unknown]

NARRATIVE: CASE EVENT DATE: 20140729
